FAERS Safety Report 4941832-0 (Version None)
Quarter: 2006Q1

REPORT INFORMATION
  Report Type: 
  Country: None (occurrence: None)
  Receive Date: 20060307
  Receipt Date: 20060223
  Transmission Date: 20060701
  Serious: Yes (Hospitalization, Other)
  Sender: FDA-Public Use
  Company Number: HQWYE591826AUG04

PATIENT
  Age: 50 Year
  Sex: Female
  Weight: 79.45 kg

DRUGS (5)
  1. PREMPRO [Suspect]
     Indication: HORMONE REPLACEMENT THERAPY
  2. FEMHRT [Suspect]
     Indication: HORMONE REPLACEMENT THERAPY
  3. PREMARIN [Suspect]
     Indication: HORMONE REPLACEMENT THERAPY
  4. PREMARIN [Suspect]
  5. PROVERA [Suspect]
     Indication: HORMONE REPLACEMENT THERAPY

REACTIONS (8)
  - BREAST CANCER FEMALE [None]
  - BREAST CANCER STAGE III [None]
  - DRUG INTOLERANCE [None]
  - FIBROCYSTIC BREAST DISEASE [None]
  - METASTASES TO LYMPH NODES [None]
  - OESTROGEN RECEPTOR ASSAY POSITIVE [None]
  - PROGESTERONE RECEPTOR ASSAY POSITIVE [None]
  - VAGINAL HAEMORRHAGE [None]
